FAERS Safety Report 8969770 (Version 1)
Quarter: 2012Q4

REPORT INFORMATION
  Report Type: 
  Country: US (occurrence: US)
  Receive Date: 20121218
  Receipt Date: 20121218
  Transmission Date: 20130627
  Serious: No
  Sender: FDA-Public Use
  Company Number: US-BRISTOL-MYERS SQUIBB COMPANY-16244162

PATIENT
  Age: 27 Year
  Sex: Male
  Weight: 80 kg

DRUGS (2)
  1. ABILIFY [Suspect]
     Indication: AFFECTIVE DISORDER
     Dates: start: 201012
  2. EFFEXOR [Concomitant]
     Indication: AFFECTIVE DISORDER

REACTIONS (2)
  - Weight increased [Not Recovered/Not Resolved]
  - Dyspnoea [Unknown]
